FAERS Safety Report 25282877 (Version 2)
Quarter: 2025Q3

REPORT INFORMATION
  Report Type: Spontaneous
  Country: JP (occurrence: JP)
  Receive Date: 20250508
  Receipt Date: 20250711
  Transmission Date: 20251021
  Serious: Yes (Hospitalization)
  Sender: BAYER HEALTHCARE PHARMACEUTICALS INC.
  Company Number: JP-BAYER-2025A045993

PATIENT
  Age: 44 Year
  Sex: Female

DRUGS (1)
  1. BETAFERON [Suspect]
     Active Substance: INTERFERON BETA-1B

REACTIONS (7)
  - Multiple sclerosis [None]
  - Visual impairment [None]
  - Administration site induration [None]
  - Injection site pain [None]
  - Product preparation error [None]
  - Product use issue [None]
  - Lack of injection site rotation [None]

NARRATIVE: CASE EVENT DATE: 20250403
